FAERS Safety Report 17244108 (Version 1)
Quarter: 2020Q1

REPORT INFORMATION
  Report Type: Spontaneous
  Country: US (occurrence: US)
  Receive Date: 20200107
  Receipt Date: 20200107
  Transmission Date: 20200409
  Serious: No
  Sender: FDA-Public Use
  Company Number: US-AMNEAL PHARMACEUTICALS-2019-AMRX-02580

PATIENT
  Age: 5 Year
  Sex: Male
  Weight: 24 kg

DRUGS (2)
  1. GUANFACINE. [Suspect]
     Active Substance: GUANFACINE
     Indication: PRODUCT USED FOR UNKNOWN INDICATION
     Dosage: 0.5 TABLETS, 2X/DAY
     Route: 065
     Dates: start: 20180724
  2. GUANFACINE. [Suspect]
     Active Substance: GUANFACINE
     Dosage: 1 TABLETS, 2X/DAY
     Route: 065
     Dates: start: 2018, end: 201903

REACTIONS (1)
  - Excessive eye blinking [Recovered/Resolved]

NARRATIVE: CASE EVENT DATE: 201811
